FAERS Safety Report 9106120 (Version 1)
Quarter: 2013Q1

REPORT INFORMATION
  Report Type: Spontaneous
  Country: KR (occurrence: KR)
  Receive Date: 20130221
  Receipt Date: 20130221
  Transmission Date: 20140127
  Serious: Yes (Other)
  Sender: FDA-Public Use
  Company Number: KR-MERCK-1302KOR007936

PATIENT
  Sex: Male

DRUGS (1)
  1. JANUVIA TABLETS 100MG [Suspect]
     Indication: BLOOD GLUCOSE FLUCTUATION
     Dosage: UNK
     Route: 048

REACTIONS (1)
  - Coronary arterial stent insertion [Unknown]
